FAERS Safety Report 20570281 (Version 1)
Quarter: 2022Q1

REPORT INFORMATION
  Report Type: Other
  Country: None (occurrence: US)
  Receive Date: 20220309
  Receipt Date: 20220309
  Transmission Date: 20220423
  Serious: Yes (Hospitalization)
  Sender: FDA-Public Use
  Company Number: US-OrBion Pharmaceuticals Private Limited-2126595

PATIENT
  Age: 12 Year
  Sex: Female

DRUGS (1)
  1. AMLODIPINE BESYLATE [Suspect]
     Active Substance: AMLODIPINE BESYLATE
     Route: 065

REACTIONS (12)
  - Overdose [Recovered/Resolved]
  - Acute respiratory distress syndrome [Recovered/Resolved]
  - Shock [Recovered/Resolved]
  - Drug level above therapeutic [Recovered/Resolved]
  - Tachycardia [Recovered/Resolved]
  - Leukocytosis [Recovered/Resolved]
  - Lung infiltration [Recovered/Resolved]
  - Lactic acidosis [Recovered/Resolved]
  - Hypoxia [Recovered/Resolved]
  - Hypercapnia [Recovered/Resolved]
  - Pericardial effusion [Recovered/Resolved]
  - Pleural effusion [Recovered/Resolved]
